FAERS Safety Report 6449099-1 (Version None)
Quarter: 2009Q4

REPORT INFORMATION
  Report Type: 
  Country: None (occurrence: None)
  Receive Date: 20091120
  Receipt Date: 20091111
  Transmission Date: 20100525
  Serious: No
  Sender: FDA-Public Use
  Company Number: US-JNJFOC-20091104357

PATIENT
  Sex: Female
  Weight: 70.31 kg

DRUGS (2)
  1. DURAGESIC-100 [Suspect]
     Indication: BREAST CANCER
     Route: 062
  2. PERCOCET [Concomitant]
     Dosage: 10/325 MG /PERDAY
     Route: 048

REACTIONS (3)
  - DRUG EFFECT DECREASED [None]
  - DRUG PRESCRIBING ERROR [None]
  - TREATMENT NONCOMPLIANCE [None]
